FAERS Safety Report 22676267 (Version 2)
Quarter: 2025Q4

REPORT INFORMATION
  Report Type: Spontaneous
  Country: US (occurrence: US)
  Receive Date: 20230706
  Receipt Date: 20251223
  Transmission Date: 20260117
  Serious: No
  Sender: PADAGIS
  Company Number: US-PADAGIS-2023PAD00928

PATIENT

DRUGS (1)
  1. IMIQUIMOD [Suspect]
     Active Substance: IMIQUIMOD
     Indication: Skin papilloma
     Dosage: UNK, QD
     Route: 061

REACTIONS (3)
  - Mouth ulceration [Recovered/Resolved]
  - Product use issue [Unknown]
  - Product use in unapproved indication [Unknown]
